FAERS Safety Report 7890544-2 (Version None)
Quarter: 2011Q4

REPORT INFORMATION
  Report Type: 
  Country: None (occurrence: None)
  Receive Date: 20111103
  Receipt Date: 20110720
  Transmission Date: 20120403
  Serious: No
  Sender: FDA-Public Use
  Company Number: US-AMGEN-USASP2011036995

PATIENT
  Age: 49 Year
  Sex: Female
  Weight: 67.12 kg

DRUGS (4)
  1. TYLENOL (CAPLET) [Concomitant]
     Dosage: 650 MG, UNK
  2. DEXILANT [Concomitant]
     Dosage: 60 MG, UNK
  3. CELEBREX [Concomitant]
     Dosage: 50 MG, UNK
  4. ENBREL [Suspect]
     Indication: PRODUCT USED FOR UNKNOWN INDICATION
     Dosage: 50 MG, QWK
     Route: 058

REACTIONS (2)
  - HEADACHE [None]
  - NAUSEA [None]
